FAERS Safety Report 8298847-7 (Version None)
Quarter: 2012Q2

REPORT INFORMATION
  Report Type: 
  Country: None (occurrence: None)
  Receive Date: 20120419
  Receipt Date: 20120410
  Transmission Date: 20120825
  Serious: Yes (Other)
  Sender: FDA-Public Use
  Company Number: US-ASTRAZENECA-2012SE01613

PATIENT
  Age: 57 Year
  Sex: Female

DRUGS (2)
  1. COLESTIPOL HYDROCHLORIDE [Suspect]
     Route: 065
  2. CRESTOR [Suspect]
     Route: 048

REACTIONS (7)
  - CARDIAC FAILURE [None]
  - BLOOD PRESSURE ABNORMAL [None]
  - ABDOMINAL PAIN UPPER [None]
  - FOOT FRACTURE [None]
  - HAEMORRHAGE [None]
  - CONSTIPATION [None]
  - RESTLESS LEGS SYNDROME [None]
